FAERS Safety Report 5132096-6 (Version None)
Quarter: 2006Q4

REPORT INFORMATION
  Report Type: 
  Country: None (occurrence: None)
  Receive Date: 20061017
  Receipt Date: 20061004
  Transmission Date: 20070319
  Serious: Yes (Hospitalization)
  Sender: FDA-Public Use
  Company Number: FABR-11446

PATIENT
  Age: 46 Year
  Sex: Male
  Weight: 70 kg

DRUGS (11)
  1. FABRAZYME [Suspect]
     Indication: FABRY'S DISEASE
     Dosage: 70 MG Q2WKS IV
     Route: 042
     Dates: start: 20051001
  2. AGGRENOX [Concomitant]
  3. TEGRETOL [Concomitant]
  4. PROZAC [Concomitant]
  5. NEURONTIN [Concomitant]
  6. LISINOPRIL [Concomitant]
  7. METHADONE HCL [Concomitant]
  8. FIBROSIN [Concomitant]
  9. PROMETHAZINE [Concomitant]
  10. FLOMAX [Concomitant]
  11. METOPROLOL TARTRATE [Concomitant]

REACTIONS (10)
  - ASTHENIA [None]
  - BLOOD SODIUM DECREASED [None]
  - BLOOD UREA DECREASED [None]
  - CONDUCTION DISORDER [None]
  - DEHYDRATION [None]
  - DRUG DOSE OMISSION [None]
  - DRUG INEFFECTIVE [None]
  - GASTROENTERITIS [None]
  - HEART RATE DECREASED [None]
  - PAIN [None]
